FAERS Safety Report 14950641 (Version 2)
Quarter: 2018Q4

REPORT INFORMATION
  Report Type: Report from Study
  Country: None (occurrence: FR)
  Receive Date: 20180530
  Receipt Date: 20181211
  Transmission Date: 20190204
  Serious: Yes (Hospitalization, Other)
  Sender: FDA-Public Use
  Company Number: FR-ABBVIE-18K-056-2293410-00

PATIENT
  Age: 83 Year
  Sex: Female

DRUGS (4)
  1. LYRICA [Concomitant]
     Active Substance: PREGABALIN
     Indication: PRODUCT USED FOR UNKNOWN INDICATION
     Dosage: 1 HARD CAPSULE IN THE EVENING
     Route: 065
  2. DUODOPA [Suspect]
     Active Substance: CARBIDOPA\LEVODOPA
     Dosage: MD: 4 ML; CFR DAY: 2.7ML/H; CFR NIGHT: 1.9 ML/H; ED: 3 ML.
     Route: 050
     Dates: start: 20151106
  3. DUODOPA [Suspect]
     Active Substance: CARBIDOPA\LEVODOPA
     Indication: PARKINSON^S DISEASE
     Dosage: MORNING DOSE:4 ML, EXTRA DOSE:4 ML (MAX 4 TIMES DAILY WITH 3 HOUR INTERVAL).
     Route: 050
     Dates: start: 20151101
  4. DUODOPA [Suspect]
     Active Substance: CARBIDOPA\LEVODOPA
     Dosage: CONTINUOUS FLOW RATE (DURING DAY):2.7 ML/H, CONTINUOUS FLOW RATE (DURING NIGHT):1.9 ML/H
     Route: 050

REACTIONS (8)
  - Stoma site discharge [Unknown]
  - Skin abrasion [Unknown]
  - Stoma site inflammation [Not Recovered/Not Resolved]
  - Erysipelas [Not Recovered/Not Resolved]
  - Medical device change [Unknown]
  - Hospitalisation [Not Recovered/Not Resolved]
  - Stoma site pain [Unknown]
  - Hallucination, auditory [Not Recovered/Not Resolved]

NARRATIVE: CASE EVENT DATE: 201803
